FAERS Safety Report 19074011 (Version 1)
Quarter: 2021Q1

REPORT INFORMATION
  Report Type: Spontaneous
  Country: US (occurrence: US)
  Receive Date: 20210330
  Receipt Date: 20210330
  Transmission Date: 20210420
  Serious: No
  Sender: FDA-Public Use
  Company Number: US-TEVA-2021-US-1889523

PATIENT
  Sex: Female

DRUGS (14)
  1. FIBERCON 625 MG TABLET [Concomitant]
  2. NEXIUM 20 MG CAPSULE [Concomitant]
  3. GABAPENTIN 600 MG TABLET [Concomitant]
  4. BYDUREON PEN 2 MG/0.65 ML PEN INJCTR [Concomitant]
  5. TRAZODONE HCL 300 MG TABLET [Concomitant]
  6. LIPITOR 10 MG TABLET [Concomitant]
  7. REQUIP 0.25 MG TABLET [Concomitant]
  8. TRICOR 145 MG TABLET [Concomitant]
  9. AUSTEDO [Suspect]
     Active Substance: DEUTETRABENAZINE
     Indication: TARDIVE DYSKINESIA
     Dosage: 12 MILLIGRAM DAILY;
     Route: 048
     Dates: start: 202007
  10. HUMALOG 100/ML UNITS [Concomitant]
  11. LAMICTAL 100 MG TABLET [Concomitant]
  12. BUPROPION HCL 100 MG TABLET [Concomitant]
  13. PROBIOTIC 10B CELL CAPSULE [Concomitant]
  14. CLONAZEPAM 0.5 MG TABLET [Concomitant]
     Active Substance: CLONAZEPAM

REACTIONS (1)
  - Insomnia [Unknown]
